FAERS Safety Report 23834215 (Version 2)
Quarter: 2024Q3

REPORT INFORMATION
  Report Type: Spontaneous
  Country: US (occurrence: US)
  Receive Date: 20240509
  Receipt Date: 20240807
  Transmission Date: 20241016
  Serious: Yes (Other)
  Sender: JOHNSON AND JOHNSON
  Company Number: US-JNJFOC-20240489802

PATIENT
  Age: 48 Year
  Sex: Male

DRUGS (1)
  1. TREMFYA [Suspect]
     Active Substance: GUSELKUMAB
     Indication: Psoriatic arthropathy
     Route: 058
     Dates: start: 20230906

REACTIONS (2)
  - Psoriatic arthropathy [Not Recovered/Not Resolved]
  - Diarrhoea [Unknown]
